FAERS Safety Report 7042146-8 (Version None)
Quarter: 2010Q4

REPORT INFORMATION
  Report Type: 
  Country: None (occurrence: None)
  Receive Date: 20101013
  Receipt Date: 20100816
  Transmission Date: 20110411
  Serious: No
  Sender: FDA-Public Use
  Company Number: US-ASTRAZENECA-2010SE38427

PATIENT
  Sex: Female

DRUGS (3)
  1. SYMBICORT [Suspect]
     Indication: ASTHMA
     Dosage: 160/4.5 UG, ONE PUFF TWICE DAILY
     Route: 055
     Dates: start: 20100101, end: 20100101
  2. SYMBICORT [Suspect]
     Dosage: 160/4.5 UG, 2 PUFFS TWICE DAILY
     Route: 055
  3. SYMBICORT [Suspect]
     Dosage: 160/4.5 UG, 1 PUFF TWICE DAILY
     Route: 055
     Dates: start: 20100101

REACTIONS (3)
  - DRUG DOSE OMISSION [None]
  - DRUG EXPOSURE DURING PREGNANCY [None]
  - DYSPNOEA [None]
